FAERS Safety Report 19828647 (Version 3)
Quarter: 2021Q3

REPORT INFORMATION
  Report Type: Spontaneous
  Country: IT (occurrence: IT)
  Receive Date: 20210914
  Receipt Date: 20210927
  Transmission Date: 20211014
  Serious: Yes (Other)
  Sender: FDA-Public Use
  Company Number: IT-GILEAD-2021-0547922

PATIENT
  Age: 51 Year
  Sex: Male
  Weight: 95 kg

DRUGS (5)
  1. METOCLOPRAMIDE. [Suspect]
     Active Substance: METOCLOPRAMIDE
     Indication: HICCUPS
     Dosage: 10 MG
     Route: 042
     Dates: start: 20210825, end: 20210825
  2. DEXAMETHASONE. [Concomitant]
     Active Substance: DEXAMETHASONE
     Indication: COVID-19
     Dosage: 6 MG
     Route: 042
     Dates: start: 20210822, end: 20210827
  3. VEKLURY [Suspect]
     Active Substance: REMDESIVIR
     Indication: COVID-19
     Dosage: 200 MG/KG, QD
     Route: 042
     Dates: start: 20210823, end: 20210825
  4. TALOFEN [Suspect]
     Active Substance: PROMAZINE HYDROCHLORIDE
     Indication: HICCUPS
     Dosage: 10 DROPS
     Route: 048
     Dates: start: 20210825, end: 20210825
  5. ENOXAPARIN SODIUM. [Concomitant]
     Active Substance: ENOXAPARIN SODIUM
     Indication: COVID-19
     Dosage: 6 K[IU] (KILO?INTERNATIONAL UNIT)
     Route: 058
     Dates: start: 20210822, end: 20210830

REACTIONS (2)
  - Off label use [Recovered/Resolved]
  - Bradycardia [Recovered/Resolved]

NARRATIVE: CASE EVENT DATE: 20210825
